FAERS Safety Report 14030885 (Version 1)
Quarter: 2017Q4

REPORT INFORMATION
  Report Type: Spontaneous
  Country: TW (occurrence: TW)
  Receive Date: 20171002
  Receipt Date: 20171002
  Transmission Date: 20180321
  Serious: Yes (Other)
  Sender: FDA-Public Use
  Company Number: TW-AMGEN-TWNSP2017148278

PATIENT
  Age: 44 Year
  Sex: Female

DRUGS (5)
  1. SALAZINE [Concomitant]
     Active Substance: SULFASALAZINE
     Dosage: 500 MG, BID
     Route: 048
  2. CELEBREX [Concomitant]
     Active Substance: CELECOXIB
     Dosage: 200 MG, BID
     Route: 048
  3. PLAQUENIL [Concomitant]
     Active Substance: HYDROXYCHLOROQUINE SULFATE
     Dosage: 200 MG,BID
     Route: 048
  4. ENBREL [Suspect]
     Active Substance: ETANERCEPT
     Indication: RHEUMATOID ARTHRITIS
     Dosage: 25 MG, 2 TIMES/WK
     Route: 058
     Dates: start: 20170510, end: 20170908
  5. MTX [Concomitant]
     Active Substance: METHOTREXATE SODIUM
     Dosage: 5 MG, TIW
     Route: 048

REACTIONS (1)
  - Adenocarcinoma gastric [Not Recovered/Not Resolved]

NARRATIVE: CASE EVENT DATE: 201708
